FAERS Safety Report 9741572 (Version 1)
Quarter: 2013Q4

REPORT INFORMATION
  Report Type: Spontaneous
  Country: KR (occurrence: KR)
  Receive Date: 20131210
  Receipt Date: 20131210
  Transmission Date: 20140711
  Serious: Yes (Other)
  Sender: FDA-Public Use
  Company Number: KR-009507513-1312KOR003540

PATIENT
  Sex: Male

DRUGS (2)
  1. COSOPT [Suspect]
     Indication: GLAUCOMA
     Dosage: UNK
     Route: 047
     Dates: start: 2004, end: 2012
  2. COSOPT [Suspect]
     Dosage: UNK
     Route: 047
     Dates: start: 20131115

REACTIONS (2)
  - Surgery [Unknown]
  - Eye pain [Unknown]
